FAERS Safety Report 6631748-6 (Version None)
Quarter: 2010Q1

REPORT INFORMATION
  Report Type: 
  Country: None (occurrence: None)
  Receive Date: 20100312
  Receipt Date: 20100303
  Transmission Date: 20100710
  Serious: Yes (Hospitalization)
  Sender: FDA-Public Use
  Company Number: US-ASTRAZENECA-2010SE09430

PATIENT
  Age: 37 Year
  Sex: Male

DRUGS (1)
  1. CRESTOR [Suspect]
     Indication: HYPERLIPIDAEMIA
     Route: 048

REACTIONS (3)
  - DEHYDRATION [None]
  - FATIGUE [None]
  - RHABDOMYOLYSIS [None]
